FAERS Safety Report 16407447 (Version 1)
Quarter: 2019Q2

REPORT INFORMATION
  Report Type: Spontaneous
  Country: CO (occurrence: CO)
  Receive Date: 20190608
  Receipt Date: 20190608
  Transmission Date: 20190711
  Serious: Yes (Hospitalization)
  Sender: FDA-Public Use
  Company Number: PHHY2019CO131114

PATIENT
  Age: 35 Year
  Sex: Male

DRUGS (4)
  1. CYCLOSPORIN A [Suspect]
     Active Substance: CYCLOSPORINE
     Indication: ULCERATIVE KERATITIS
     Dosage: 1 DRP, Q8H
     Route: 047
  2. TINIDAZOLE. [Suspect]
     Active Substance: TINIDAZOLE
     Indication: PRODUCT USED FOR UNKNOWN INDICATION
     Dosage: 500 MG, Q12H
     Route: 048
  3. ALBENDAZOLE. [Suspect]
     Active Substance: ALBENDAZOLE
     Indication: PRODUCT USED FOR UNKNOWN INDICATION
     Dosage: 200 MG, QD
     Route: 048
  4. CARBAMAZEPINE. [Suspect]
     Active Substance: CARBAMAZEPINE
     Indication: PRODUCT USED FOR UNKNOWN INDICATION
     Dosage: 200 MG, QD
     Route: 048

REACTIONS (16)
  - Eye disorder [Recovered/Resolved]
  - Corneal lesion [Recovered/Resolved]
  - Pruritus [Recovered/Resolved]
  - Photophobia [Recovered/Resolved]
  - Lacrimation increased [Recovered/Resolved]
  - Eye pain [Recovered/Resolved]
  - Corneal thinning [Recovered/Resolved]
  - Visual acuity reduced [Recovered/Resolved]
  - Conjunctival oedema [Recovered/Resolved]
  - Ulcerative keratitis [Recovered/Resolved]
  - Ciliary hyperaemia [Recovered/Resolved]
  - Ocular vascular disorder [Recovered/Resolved]
  - Corneal disorder [Recovered/Resolved]
  - Eye irritation [Recovered/Resolved]
  - Perforated ulcer [Recovered/Resolved]
  - Iridocele [Recovered/Resolved]
